FAERS Safety Report 10652150 (Version 2)
Quarter: 2014Q4

REPORT INFORMATION
  Report Type: Report from Study
  Country: DE (occurrence: DE)
  Receive Date: 20141215
  Receipt Date: 20141215
  Transmission Date: 20150529
  Serious: Yes (Death, Hospitalization)
  Sender: FDA-Public Use
  Company Number: DE-PFIZER INC-2002132294DE

PATIENT
  Age: 71 Year
  Sex: Female

DRUGS (10)
  1. GLIBEN AZU [Concomitant]
     Indication: HYPERGLYCAEMIA
     Dosage: UNK
     Route: 048
     Dates: start: 200106, end: 20021103
  2. COTRIM D.S. [Concomitant]
     Active Substance: SULFAMETHOXAZOLE\TRIMETHOPRIM
     Indication: URETERITIS
     Dosage: UNK
     Route: 048
     Dates: start: 20021028, end: 20021031
  3. SUNITINIB MALATE [Suspect]
     Active Substance: SUNITINIB MALATE
     Indication: ACUTE MYELOID LEUKAEMIA
     Dosage: 50 MG, 1X/DAY (CYCLE 1 4 WEEKS ON, 1 WEEKS OFF)
     Route: 048
     Dates: start: 20020924, end: 20021025
  4. ZOVIRAX [Concomitant]
     Active Substance: ACYCLOVIR
     Indication: ANTIVIRAL PROPHYLAXIS
     Dosage: UNK
     Route: 048
     Dates: start: 20021021, end: 200210
  5. FURORESE [Concomitant]
     Active Substance: FUROSEMIDE
     Indication: PROPHYLAXIS
     Dosage: UNK
     Route: 048
     Dates: start: 200106, end: 200211
  6. TRAMAL LONG [Concomitant]
     Active Substance: TRAMADOL
     Indication: PAIN
     Dosage: UNK
     Route: 048
     Dates: start: 20021101
  7. VIOXX [Concomitant]
     Active Substance: ROFECOXIB
     Indication: PAIN
     Dosage: UNK
     Route: 048
     Dates: start: 20021004, end: 200211
  8. SUNITINIB MALATE [Suspect]
     Active Substance: SUNITINIB MALATE
     Dosage: 50 MG, 1X/DAY (CYCLE 2, 4 WEEKS ON, 1 WEEK OFF)
     Route: 048
     Dates: start: 20021028, end: 20021103
  9. ISMO [Concomitant]
     Active Substance: ISOSORBIDE MONONITRATE
     Indication: ANGINA PECTORIS
     Dosage: UNK
     Route: 048
     Dates: start: 20021004, end: 200211
  10. KALINOR RETARD [Concomitant]
     Active Substance: POTASSIUM CHLORIDE
     Dosage: UNK
     Route: 048
     Dates: start: 200106, end: 20021102

REACTIONS (6)
  - Acute myeloid leukaemia [Fatal]
  - Bone pain [Unknown]
  - Pneumonia [Unknown]
  - Disease progression [Fatal]
  - Blood creatine phosphokinase MB increased [Unknown]
  - Fatigue [Unknown]

NARRATIVE: CASE EVENT DATE: 20021103
